FAERS Safety Report 6623997 (Version 3)
Quarter: 2017Q2

REPORT INFORMATION
  Report Type: Report from Study
  Country: FR (occurrence: FR)
  Receive Date: 20080424
  Receipt Date: 20170420
  Transmission Date: 20170830
  Serious: Yes (Death, Hospitalization)
  Sender: FDA-Public Use
  Company Number: FR-PFIZER INC-2008035041

PATIENT
  Age: 76 Year
  Sex: Female
  Weight: 61 kg

DRUGS (7)
  1. SUNITINIB MALATE. [Suspect]
     Active Substance: SUNITINIB MALATE
     Indication: THYROID CANCER
     Dosage: 50 MG, CYCLIC (FOR 4 WEEKS FOLLOWED BY A 2-WEEK REST)
     Route: 048
     Dates: start: 20080313, end: 20080407
  2. HYPERIUM [Concomitant]
     Active Substance: RILMENIDINE PHOSPHATE
     Dosage: 1 MG, 1X/DAY
     Dates: start: 20080320
  3. MIANSERIN [Concomitant]
     Active Substance: MIANSERIN
     Dosage: 60 MG, 2X/DAY
     Dates: start: 1998
  4. LEVOTHYROX [Concomitant]
     Active Substance: LEVOTHYROXINE
     Dosage: 125 UG, 1X/DAY
     Dates: start: 1999
  5. MOPRAL [Concomitant]
     Active Substance: OMEPRAZOLE SODIUM
     Dosage: 20 MG, 1X/DAY
     Dates: start: 2000
  6. HYPERIUM [Concomitant]
     Active Substance: RILMENIDINE PHOSPHATE
     Dosage: UNK, 2X/DAY
  7. NOCTRAN [Concomitant]
     Active Substance: ACEPROMAZINE MALEATE\ACEPROMETAZINE\CLORAZEPATE DIPOTASSIUM
     Dosage: 10 MG, 1X/DAY
     Dates: start: 20080316

REACTIONS (2)
  - Cardiac failure congestive [Fatal]
  - Aortic thrombosis [Fatal]
